FAERS Safety Report 4475708-2 (Version None)
Quarter: 2004Q3

REPORT INFORMATION
  Report Type: 
  Country: None (occurrence: None)
  Receive Date: 20040923
  Receipt Date: 20040810
  Transmission Date: 20050211
  Serious: No
  Sender: FDA-Public Use
  Company Number: USA040772892

PATIENT
  Age: 54 Year
  Sex: Male
  Weight: 73 kg

DRUGS (6)
  1. FORTEO [Suspect]
     Indication: OSTEOPOROSIS
     Dosage: 20 UG/1 DAY
     Dates: start: 20031101
  2. PROTONIX [Concomitant]
  3. SPIRONOLACTONE [Concomitant]
  4. FUROSEMIDE [Concomitant]
  5. ULTRAM [Concomitant]
  6. CALCIUM WITH VITAMIN D [Concomitant]

REACTIONS (2)
  - SPINAL COMPRESSION FRACTURE [None]
  - WEIGHT INCREASED [None]
